FAERS Safety Report 4465092-2 (Version None)
Quarter: 2004Q3

REPORT INFORMATION
  Report Type: 
  Country: None (occurrence: None)
  Receive Date: 20040928
  Receipt Date: 20040928
  Transmission Date: 20050211
  Serious: Yes (Hospitalization)
  Sender: FDA-Public Use
  Company Number: None

PATIENT
  Sex: Male

DRUGS (12)
  1. ETOPOSIDE [Suspect]
     Indication: SMALL CELL LUNG CANCER STAGE UNSPECIFIED
     Dosage: 220 MG  ONCE  INTRAVENOUS
     Route: 042
     Dates: start: 20040129, end: 20040129
  2. LISINOPRIL [Concomitant]
  3. MORPHINE [Concomitant]
  4. HYDROMORPHONE HCL [Concomitant]
  5. PROCHLORPERAZINE [Concomitant]
  6. ONDANSETRON [Concomitant]
  7. IBUPROFEN [Concomitant]
  8. GLYBURIDE [Concomitant]
  9. LACTULOSE [Concomitant]
  10. CIMETIDINE [Concomitant]
  11. MECLIZINE [Concomitant]
  12. FLUOXETINE [Concomitant]

REACTIONS (2)
  - DEHYDRATION [None]
  - VOMITING [None]
